FAERS Safety Report 19965842 (Version 1)
Quarter: 2021Q4

REPORT INFORMATION
  Report Type: Spontaneous
  Country: US (occurrence: US)
  Receive Date: 20211018
  Receipt Date: 20211018
  Transmission Date: 20220303
  Serious: No
  Sender: FDA-Public Use
  Company Number: US-GE HEALTHCARE LIFE SCIENCES-2021CSU003941

PATIENT
  Age: 40 Year
  Sex: Female
  Weight: 94.33 kg

DRUGS (5)
  1. OMNIPAQUE [Suspect]
     Active Substance: IOHEXOL
     Indication: Urogram
     Dosage: 70 ML, SINGLE
     Route: 042
     Dates: start: 20210802, end: 20210802
  2. OMNIPAQUE [Suspect]
     Active Substance: IOHEXOL
     Indication: Haematuria
  3. LACTOBACILLUS ACIDOPHILUS [Concomitant]
     Active Substance: LACTOBACILLUS ACIDOPHILUS
     Indication: Gastrointestinal disorder prophylaxis
     Dosage: 2 DF, QD
     Route: 048
     Dates: start: 20210715
  4. IBUPROFEN [Concomitant]
     Active Substance: IBUPROFEN
     Indication: Pain
     Dosage: 1 DF, TID (PRN)
     Route: 048
     Dates: start: 20210715
  5. ALBUTEROL [Concomitant]
     Active Substance: ALBUTEROL
     Indication: Asthma
     Dosage: 1 DF, PRN
     Dates: start: 20210715

REACTIONS (3)
  - Hyperventilation [Recovered/Resolved]
  - Vomiting [Recovered/Resolved]
  - Nausea [Recovered/Resolved]

NARRATIVE: CASE EVENT DATE: 20210802
